FAERS Safety Report 6247559-X (Version None)
Quarter: 2009Q2

REPORT INFORMATION
  Report Type: 
  Country: None (occurrence: None)
  Receive Date: 20090626
  Receipt Date: 20090620
  Transmission Date: 20091009
  Serious: Yes (Hospitalization)
  Sender: FDA-Public Use
  Company Number: PH-PFIZER INC-2009227562

PATIENT
  Age: 61 Year

DRUGS (9)
  1. NAPROXEN [Suspect]
     Indication: ARTHRITIS
     Dosage: UNK
     Route: 048
     Dates: start: 20080506
  2. BLINDED *NO SUBJECT DRUG [Suspect]
     Indication: ARTHRITIS
     Dosage: UNK
     Route: 048
     Dates: start: 20080506
  3. BLINDED *PLACEBO [Suspect]
     Indication: ARTHRITIS
     Dosage: UNK
     Route: 048
     Dates: start: 20080506
  4. BLINDED CELECOXIB [Suspect]
     Indication: ARTHRITIS
     Dosage: UNK
     Route: 048
     Dates: start: 20080506
  5. IBUPROFEN [Suspect]
     Indication: ARTHRITIS
     Dosage: UNK
     Route: 048
     Dates: start: 20080506
  6. NAPROXEN [Suspect]
     Dosage: UNK
     Route: 048
     Dates: start: 20080506
  7. NEXIUM [Concomitant]
     Dosage: UNK
     Route: 048
     Dates: start: 20080506
  8. METOPROLOL [Concomitant]
     Dosage: UNK
     Route: 048
     Dates: start: 20070311
  9. ISOSORBIDE MONONITRATE [Concomitant]
     Dosage: UNK
     Route: 048
     Dates: start: 20090120

REACTIONS (1)
  - HYPERTENSIVE CRISIS [None]
